FAERS Safety Report 7204376-1 (Version None)
Quarter: 2011Q1

REPORT INFORMATION
  Report Type: 
  Country: None (occurrence: None)
  Receive Date: 20101220
  Receipt Date: 20101207
  Transmission Date: 20110831
  Serious: Yes (Hospitalization)
  Sender: FDA-Public Use
  Company Number: JHP201000376

PATIENT

DRUGS (1)
  1. DANTRIUM [Suspect]
     Dosage: ORAL
     Route: 048

REACTIONS (2)
  - FEEDING TUBE COMPLICATION [None]
  - HOSPITALISATION [None]
